FAERS Safety Report 24745794 (Version 4)
Quarter: 2025Q1

REPORT INFORMATION
  Report Type: Spontaneous
  Country: US (occurrence: US)
  Receive Date: 20241218
  Receipt Date: 20250117
  Transmission Date: 20250409
  Serious: No
  Sender: Haleon PLC
  Company Number: US-HALEON-2215340

PATIENT

DRUGS (2)
  1. NICODERM CQ [Suspect]
     Active Substance: NICOTINE
     Indication: Post-acute COVID-19 syndrome
  2. NICODERM CQ [Suspect]
     Active Substance: NICOTINE

REACTIONS (3)
  - Dizziness [Recovered/Resolved]
  - Product complaint [Unknown]
  - Product use in unapproved indication [Recovered/Resolved]
